FAERS Safety Report 4836459-5 (Version None)
Quarter: 2005Q4

REPORT INFORMATION
  Report Type: 
  Country: None (occurrence: None)
  Receive Date: 20051123
  Receipt Date: 20051108
  Transmission Date: 20060501
  Serious: Yes (Life-Threatening)
  Sender: FDA-Public Use
  Company Number: GBWYE587317FEB04

PATIENT
  Sex: Male
  Weight: 76 kg

DRUGS (3)
  1. ENBREL [Suspect]
     Indication: RHEUMATOID ARTHRITIS
     Route: 058
     Dates: start: 20011101
  2. ENBREL [Suspect]
     Dates: start: 20020701
  3. METHOTREXATE [Concomitant]

REACTIONS (4)
  - ARTHROPATHY [None]
  - CARDIAC TAMPONADE [None]
  - PERICARDITIS [None]
  - PERICARDITIS RHEUMATIC [None]
